FAERS Safety Report 8215773-X (Version None)
Quarter: 2012Q1

REPORT INFORMATION
  Report Type: 
  Country: None (occurrence: None)
  Receive Date: 20120316
  Receipt Date: 20120308
  Transmission Date: 20120608
  Serious: Yes (Other)
  Sender: FDA-Public Use
  Company Number: US-ACTELION-A-US2012-62328

PATIENT

DRUGS (1)
  1. TRACLEER [Suspect]
     Indication: PULMONARY ARTERIAL HYPERTENSION
     Dosage: 62.5 MG, BID
     Route: 048
     Dates: start: 20120201, end: 20120209

REACTIONS (5)
  - NAUSEA [None]
  - HYPOXIA [None]
  - HEADACHE [None]
  - FLUID RETENTION [None]
  - NASAL CONGESTION [None]
